FAERS Safety Report 17559353 (Version 2)
Quarter: 2020Q2

REPORT INFORMATION
  Report Type: Spontaneous
  Country: US (occurrence: US)
  Receive Date: 20200319
  Receipt Date: 20200401
  Transmission Date: 20200713
  Serious: No
  Sender: FDA-Public Use
  Company Number: US-BIOGEN-2020BI00848361

PATIENT
  Sex: Female

DRUGS (1)
  1. TECFIDERA [Suspect]
     Active Substance: DIMETHYL FUMARATE
     Indication: MULTIPLE SCLEROSIS
     Route: 048
     Dates: start: 20200307, end: 20200314

REACTIONS (7)
  - Hypoaesthesia [Unknown]
  - Cognitive disorder [Unknown]
  - Mobility decreased [Recovered/Resolved]
  - Erythema [Not Recovered/Not Resolved]
  - Rash macular [Recovered/Resolved]
  - Gait disturbance [Unknown]
  - Hemianaesthesia [Recovered/Resolved]
